FAERS Safety Report 20899212 (Version 2)
Quarter: 2022Q2

REPORT INFORMATION
  Report Type: Spontaneous
  Country: US (occurrence: None)
  Receive Date: 20220601
  Receipt Date: 20220623
  Transmission Date: 20220721
  Serious: No
  Sender: FDA-Public Use
  Company Number: 2022A195803

PATIENT
  Age: 903 Month
  Sex: Female
  Weight: 100.7 kg

DRUGS (2)
  1. FARXIGA [Suspect]
     Active Substance: DAPAGLIFLOZIN PROPANEDIOL
     Indication: Blood glucose decreased
     Route: 048
     Dates: start: 20220516, end: 20220520
  2. FARXIGA [Suspect]
     Active Substance: DAPAGLIFLOZIN PROPANEDIOL
     Indication: Weight decreased
     Route: 048
     Dates: start: 20220516, end: 20220520

REACTIONS (10)
  - Weight decreased [Unknown]
  - Dry mouth [Not Recovered/Not Resolved]
  - Skin fissures [Not Recovered/Not Resolved]
  - Pain [Unknown]
  - Lip swelling [Not Recovered/Not Resolved]
  - Palate injury [Not Recovered/Not Resolved]
  - Odynophagia [Recovering/Resolving]
  - Generalised oedema [Not Recovered/Not Resolved]
  - Hypersensitivity [Recovering/Resolving]
  - Oral mucosal erythema [Recovering/Resolving]

NARRATIVE: CASE EVENT DATE: 20220501
